FAERS Safety Report 15667957 (Version 1)
Quarter: 2018Q4

REPORT INFORMATION
  Report Type: Report from Study
  Country: GR (occurrence: GR)
  Receive Date: 20181128
  Receipt Date: 20181128
  Transmission Date: 20190205
  Serious: Yes (Other)
  Sender: FDA-Public Use
  Company Number: GR-MYLANLABS-2018M1088585

PATIENT
  Age: 51 Year
  Sex: Female

DRUGS (2)
  1. CLIFT [GLATIRAMER ACETATE] [Suspect]
     Active Substance: GLATIRAMER ACETATE
     Indication: ANKYLOSING SPONDYLITIS
  2. CLIFT [GLATIRAMER ACETATE] [Suspect]
     Active Substance: GLATIRAMER ACETATE
     Indication: MULTIPLE SCLEROSIS
     Dosage: 20 MILLIGRAM, QD
     Route: 058
     Dates: start: 20180531, end: 201811

REACTIONS (1)
  - Drug ineffective [Unknown]
